FAERS Safety Report 5652952-X (Version None)
Quarter: 2008Q1

REPORT INFORMATION
  Report Type: 
  Country: None (occurrence: None)
  Receive Date: 20080306
  Receipt Date: 20080304
  Transmission Date: 20080703
  Serious: Yes (Other)
  Sender: FDA-Public Use
  Company Number: US-ASTRAZENECA-2008UW01633

PATIENT
  Age: 30426 Day
  Sex: Female
  Weight: 65.9 kg

DRUGS (8)
  1. FASLODEX [Suspect]
     Indication: BREAST CANCER METASTATIC
     Route: 030
     Dates: start: 20080110
  2. FASLODEX [Suspect]
     Route: 030
     Dates: start: 20080205
  3. COUMADIN [Concomitant]
  4. NEURONTIN [Concomitant]
     Indication: NEUROPATHY PERIPHERAL
     Route: 048
  5. BACTRIM DS [Concomitant]
     Indication: PROPHYLAXIS
     Route: 048
  6. FORTAMET [Concomitant]
     Indication: DIABETES MELLITUS
     Route: 048
  7. GLUCOTROL [Concomitant]
     Indication: DIABETES MELLITUS
     Dosage: 10 MG ONE AND A HALF DAILY
     Route: 048
  8. QUINAPRIL HCL [Concomitant]
     Indication: HYPERTENSION
     Route: 048

REACTIONS (3)
  - ABDOMINAL PAIN [None]
  - MUSCULAR WEAKNESS [None]
  - NEUROPATHY PERIPHERAL [None]
